FAERS Safety Report 15679511 (Version 1)
Quarter: 2018Q4

REPORT INFORMATION
  Report Type: Spontaneous
  Country: US (occurrence: US)
  Receive Date: 20181203
  Receipt Date: 20181203
  Transmission Date: 20190205
  Serious: No
  Sender: FDA-Public Use
  Company Number: US-TEVA-2018-US-978651

PATIENT
  Sex: Male

DRUGS (1)
  1. FLUTICASONE PROPIONATE AND SALMETEROL [Suspect]
     Active Substance: FLUTICASONE PROPIONATE\SALMETEROL XINAFOATE
     Dosage: FLUTICASONE PROPIONATE 232MCG+ SALMETEROL 14 MCG
     Route: 065

REACTIONS (1)
  - Dysphonia [Recovering/Resolving]
